FAERS Safety Report 23874100 (Version 1)
Quarter: 2024Q2

REPORT INFORMATION
  Report Type: Spontaneous
  Country: US (occurrence: US)
  Receive Date: 20240520
  Receipt Date: 20240520
  Transmission Date: 20240715
  Serious: No
  Sender: FDA-Public Use
  Company Number: US-CIPLA LTD.-2024US02705

PATIENT

DRUGS (6)
  1. ALBUTEROL [Suspect]
     Active Substance: ALBUTEROL
     Indication: Asthma
     Dosage: 360 MICROGRAM (4 PUFFS), PRN (2021-2022 (2-3 YEARS))
     Route: 065
  2. ALBUTEROL [Suspect]
     Active Substance: ALBUTEROL
     Dosage: 360 MICROGRAM (4 PUFFS), PRN
     Route: 065
     Dates: start: 202402
  3. ALBUTEROL [Suspect]
     Active Substance: ALBUTEROL
     Dosage: 360 MICROGRAM (4 PUFFS), PRN
     Route: 065
     Dates: start: 202402
  4. IBUPROFEN [Concomitant]
     Active Substance: IBUPROFEN
     Indication: Back pain
     Dosage: 200 MILLIGRAM, PRN (30 YEARS AGO)
     Route: 065
  5. IBUPROFEN [Concomitant]
     Active Substance: IBUPROFEN
     Indication: Arthralgia
  6. ERGOCALCIFEROL [Concomitant]
     Active Substance: ERGOCALCIFEROL
     Indication: Vitamin D deficiency
     Dosage: UNK, (2 YEARS AGO)
     Route: 065
     Dates: start: 2022

REACTIONS (4)
  - Dyspnoea [Recovered/Resolved]
  - Adverse event [Unknown]
  - Device delivery system issue [Unknown]
  - Device mechanical issue [Unknown]

NARRATIVE: CASE EVENT DATE: 20230101
